FAERS Safety Report 4510839-X (Version None)
Quarter: 2004Q4

REPORT INFORMATION
  Report Type: 
  Country: None (occurrence: None)
  Receive Date: 20041025
  Receipt Date: 20030827
  Transmission Date: 20050328
  Serious: Yes (Other)
  Sender: FDA-Public Use
  Company Number: NSADSS2003009547

PATIENT
  Age: 33 Year
  Sex: Female
  Weight: 134.7183 kg

DRUGS (6)
  1. REMICADE [Suspect]
     Indication: RHEUMATOID ARTHRITIS
     Dosage: 300 MG, 1 IN 1 AS NECESSARY, INTRAVENOUS DRIP
     Route: 041
     Dates: start: 20030225, end: 20030225
  2. METHOTREXATE SODIUM [Concomitant]
  3. VIOXX [Concomitant]
  4. STEROID NOS (COSTICOSTEROID NOS) [Concomitant]
  5. CLARINEX [Concomitant]
  6. PREDNISONE [Concomitant]

REACTIONS (3)
  - DIASTOLIC HYPERTENSION [None]
  - HYPERSENSITIVITY [None]
  - URINARY TRACT INFECTION [None]
